FAERS Safety Report 7476630-X (Version None)
Quarter: 2011Q2

REPORT INFORMATION
  Report Type: 
  Country: None (occurrence: None)
  Receive Date: 20110510
  Receipt Date: 20110510
  Transmission Date: 20111010
  Serious: Yes (Other)
  Sender: FDA-Public Use
  Company Number: None

PATIENT
  Age: 63 Year
  Sex: Male
  Weight: 123.3784 kg

DRUGS (1)
  1. TERBINAFINE HCL [Suspect]
     Indication: FUNGAL SKIN INFECTION
     Dosage: 1 TABLET DAILY PO
     Route: 048
     Dates: start: 20110222, end: 20110517

REACTIONS (4)
  - PAIN IN JAW [None]
  - GINGIVAL SWELLING [None]
  - APHTHOUS STOMATITIS [None]
  - GINGIVAL PAIN [None]
